FAERS Safety Report 8292255-0 (Version None)
Quarter: 2012Q2

REPORT INFORMATION
  Report Type: 
  Country: None (occurrence: None)
  Receive Date: 20120417
  Receipt Date: 20120404
  Transmission Date: 20120825
  Serious: Yes (Congenital Anomaly)
  Sender: FDA-Public Use
  Company Number: GB-MYLANLABS-2012S1007309

PATIENT

DRUGS (2)
  1. AZATHIOPRINE [Suspect]
     Route: 064
  2. PREDNISOLONE [Concomitant]
     Route: 064

REACTIONS (3)
  - MATERNAL EXPOSURE DURING PREGNANCY [None]
  - CONGENITAL HYPOTHYROIDISM [None]
  - THYROID MALFORMATION [None]
